FAERS Safety Report 7007816-6 (Version None)
Quarter: 2010Q3

REPORT INFORMATION
  Report Type: 
  Country: None (occurrence: None)
  Receive Date: 20100922
  Receipt Date: 20100914
  Transmission Date: 20110219
  Serious: Yes (Other)
  Sender: FDA-Public Use
  Company Number: US-ROCHE-725766

PATIENT
  Sex: Female
  Weight: 79.8 kg

DRUGS (6)
  1. PEGASYS [Suspect]
     Indication: HEPATITIS C
     Route: 058
     Dates: start: 20100819, end: 20100908
  2. RIBAVIRIN [Suspect]
     Indication: HEPATITIS C
     Route: 048
     Dates: start: 20100819, end: 20100908
  3. ALENDRONATE SODIUM [Concomitant]
     Indication: OSTEOARTHRITIS
     Route: 048
     Dates: start: 20100605
  4. TRAZODONE HCL [Concomitant]
     Indication: SOMNOLENCE
     Dosage: EVERY MORNING
     Route: 048
     Dates: start: 20100323
  5. CALCIUM/VITAMIN D [Concomitant]
     Indication: OSTEOARTHRITIS
     Route: 048
     Dates: start: 20100527
  6. VICODIN [Concomitant]
     Indication: PAIN
     Dosage: HYDROCODONE/PARACETAMOL: 500/10 MG
     Route: 048
     Dates: start: 20100912

REACTIONS (5)
  - ATAXIA [None]
  - DYSARTHRIA [None]
  - DYSKINESIA [None]
  - HEAD TITUBATION [None]
  - PARAESTHESIA ORAL [None]
